FAERS Safety Report 15750593 (Version 1)
Quarter: 2018Q4

REPORT INFORMATION
  Report Type: Spontaneous
  Country: IT (occurrence: IT)
  Receive Date: 20181221
  Receipt Date: 20181221
  Transmission Date: 20190205
  Serious: Yes (Death, Other)
  Sender: FDA-Public Use
  Company Number: IT-PFIZER INC-273838

PATIENT
  Age: 43 Year
  Sex: Male

DRUGS (4)
  1. METHYLPREDNISOLONE. [Suspect]
     Active Substance: METHYLPREDNISOLONE
     Indication: AUTOIMMUNE HAEMOLYTIC ANAEMIA
     Dosage: 2 MG/KG/DAY, TOTAL 125MG
  2. RITONAVIR. [Concomitant]
     Active Substance: RITONAVIR
     Indication: ANTIVIRAL TREATMENT
     Dosage: NOT REPORTED
  3. SAQUINAVIR [Concomitant]
     Active Substance: SAQUINAVIR
     Indication: ANTIVIRAL TREATMENT
     Dosage: NOT REPORTED
  4. EMTRICITABINE W/TENOFOVIR [Concomitant]
     Active Substance: EMTRICITABINE\TENOFOVIR DISOPROXIL
     Indication: ANTIVIRAL TREATMENT
     Dosage: NOT REPORTED

REACTIONS (3)
  - Diabetes mellitus [Unknown]
  - Rhabdomyolysis [Unknown]
  - Aeromonas infection [Fatal]
